FAERS Safety Report 10364736 (Version 1)
Quarter: 2014Q3

REPORT INFORMATION
  Report Type: Spontaneous
  Country: US (occurrence: None)
  Receive Date: 20140804
  Receipt Date: 20140804
  Transmission Date: 20150326
  Serious: Yes (Life-Threatening, Hospitalization)
  Sender: FDA-Public Use
  Company Number: None

PATIENT
  Age: 34 Year
  Sex: Male
  Weight: 90.72 kg

DRUGS (1)
  1. LEPONEX [Suspect]
     Active Substance: CLOZAPINE
     Indication: SCHIZOPHRENIA
     Dosage: 1 PILLS THREE TIMES DAILY TAKEN BY MOUTH
     Route: 048

REACTIONS (4)
  - Cardiomyopathy [None]
  - Pneumonia [None]
  - Cerebrovascular accident [None]
  - Aspiration [None]

NARRATIVE: CASE EVENT DATE: 20140717
